FAERS Safety Report 16087162 (Version 1)
Quarter: 2019Q1

REPORT INFORMATION
  Report Type: Spontaneous
  Country: MY (occurrence: MY)
  Receive Date: 20190319
  Receipt Date: 20190319
  Transmission Date: 20190418
  Serious: Yes (Other)
  Sender: FDA-Public Use
  Company Number: MY-SUN PHARMACEUTICAL INDUSTRIES LTD-2018R1-190004

PATIENT
  Age: 50 Year
  Sex: Female

DRUGS (3)
  1. HYDROCORTISONE. [Concomitant]
     Active Substance: HYDROCORTISONE
     Indication: GLUCOCORTICOID DEFICIENCY
     Dosage: 10MG IN THE MORNING AND 5 MG AT NOON
     Route: 065
  2. KETOCONAZOLE. [Suspect]
     Active Substance: KETOCONAZOLE
     Indication: HYPERCORTICOIDISM
     Dosage: 200 MG, BID
     Route: 065
  3. KETOCONAZOLE. [Suspect]
     Active Substance: KETOCONAZOLE
     Dosage: 200 MILLIGRAM, TID
     Route: 065

REACTIONS (5)
  - Skin exfoliation [Recovering/Resolving]
  - Drug ineffective [Unknown]
  - Pruritus [Recovering/Resolving]
  - Basal ganglia haemorrhage [Recovering/Resolving]
  - Condition aggravated [Recovering/Resolving]

NARRATIVE: CASE EVENT DATE: 2014
